FAERS Safety Report 25685138 (Version 1)
Quarter: 2025Q3

REPORT INFORMATION
  Report Type: Spontaneous
  Country: US (occurrence: None)
  Receive Date: 20250814
  Receipt Date: 20250814
  Transmission Date: 20251021
  Serious: Yes (Other)
  Sender: FDA-CTU
  Company Number: None

PATIENT
  Age: 79 Year
  Sex: Female
  Weight: 73.8 kg

DRUGS (8)
  1. COPAXONE [Suspect]
     Active Substance: GLATIRAMER ACETATE
     Indication: Multiple sclerosis
     Route: 058
     Dates: start: 20031231, end: 20250811
  2. GEMTESA [Concomitant]
     Active Substance: VIBEGRON
  3. Cosamin [Concomitant]
  4. Women^s One-A-Day 50 Plus [Concomitant]
  5. VITAMIN D3 [Concomitant]
     Active Substance: CHOLECALCIFEROL
  6. MAGNESIUM [Concomitant]
     Active Substance: MAGNESIUM
  7. B12 [Concomitant]
  8. Tumeric + Ginger [Concomitant]

REACTIONS (2)
  - Dysgeusia [None]
  - Anaphylactic reaction [None]

NARRATIVE: CASE EVENT DATE: 20250804
